FAERS Safety Report 6251614-8 (Version None)
Quarter: 2009Q2

REPORT INFORMATION
  Report Type: 
  Country: None (occurrence: None)
  Receive Date: 20090630
  Receipt Date: 20090623
  Transmission Date: 20091009
  Serious: Yes (Other)
  Sender: FDA-Public Use
  Company Number: US-CELGENEUS-163-21880-09061908

PATIENT
  Sex: Male

DRUGS (3)
  1. REVLIMID [Suspect]
     Indication: MYELODYSPLASTIC SYNDROME
     Route: 048
     Dates: start: 20081001
  2. REVLIMID [Suspect]
     Route: 048
     Dates: start: 20080301
  3. REVLIMID [Suspect]
     Route: 048
     Dates: start: 20080501

REACTIONS (2)
  - HAEMOGLOBIN DECREASED [None]
  - HEPATIC CIRRHOSIS [None]
